FAERS Safety Report 5068640-7 (Version None)
Quarter: 2006Q3

REPORT INFORMATION
  Report Type: 
  Country: None (occurrence: None)
  Receive Date: 20060802
  Receipt Date: 20060120
  Transmission Date: 20061208
  Serious: No
  Sender: FDA-Public Use
  Company Number: US-BRISTOL-MYERS SQUIBB COMPANY-13256094

PATIENT
  Age: 74 Year
  Sex: Female
  Weight: 64 kg

DRUGS (6)
  1. COUMADIN [Suspect]
     Dates: start: 20051012, end: 20051020
  2. BYETTA [Suspect]
     Indication: DIABETES MELLITUS NON-INSULIN-DEPENDENT
     Route: 058
     Dates: start: 20051011
  3. AVANDIA [Concomitant]
     Dates: end: 20051011
  4. AMARYL [Concomitant]
     Dates: end: 20051011
  5. LIPITOR [Concomitant]
  6. METOPROLOL [Concomitant]

REACTIONS (5)
  - DRUG INTERACTION [None]
  - NAUSEA [None]
  - PROTHROMBIN TIME SHORTENED [None]
  - VOMITING [None]
  - WEIGHT DECREASED [None]
